FAERS Safety Report 13154941 (Version 2)
Quarter: 2017Q3

REPORT INFORMATION
  Report Type: Report from Study
  Country: US (occurrence: US)
  Receive Date: 20170126
  Receipt Date: 20170726
  Transmission Date: 20171127
  Serious: Yes (Other)
  Sender: FDA-Public Use
  Company Number: US-AMGEN-USASL2017001624

PATIENT
  Age: 68 Year
  Sex: Female

DRUGS (4)
  1. ZOMETA [Concomitant]
     Active Substance: ZOLEDRONIC ACID
     Dosage: UNK UNK, QMO
  2. KYPROLIS [Suspect]
     Active Substance: CARFILZOMIB
     Indication: PLASMA CELL MYELOMA
     Dosage: UNK UNK, TWO DAYS WEEKLY EVERY OTHER WEEK
     Route: 065
  3. POMALYST [Concomitant]
     Active Substance: POMALIDOMIDE
     Dosage: 1 MG, TWENTY ONE DAYS ON AND SEVEN DAYS OFF
  4. CYTOXAN [Concomitant]
     Active Substance: CYCLOPHOSPHAMIDE
     Dosage: UNK

REACTIONS (6)
  - Plasma cell myeloma [Recovering/Resolving]
  - Laboratory test abnormal [Unknown]
  - Off label use [Unknown]
  - Lower respiratory tract infection [Unknown]
  - Nausea [Unknown]
  - Abdominal discomfort [Unknown]
